FAERS Safety Report 9913076 (Version 1)
Quarter: 2014Q1

REPORT INFORMATION
  Report Type: Spontaneous
  Country: IT (occurrence: None)
  Receive Date: 20140214
  Receipt Date: 20140214
  Transmission Date: 20141002
  Serious: Yes (Other)
  Sender: FDA-Public Use
  Company Number: 2175848

PATIENT
  Age: 42 Year
  Sex: Female
  Weight: 72 kg

DRUGS (2)
  1. PACLITAXEL [Suspect]
     Indication: CERVIX CARCINOMA
     Dosage: CYCLICAL (NOT OTHERWISE SPECIFIED)
     Route: 042
     Dates: start: 20130722, end: 20140103
  2. CARBOPLATIN [Concomitant]

REACTIONS (4)
  - Hot flush [None]
  - Psychomotor hyperactivity [None]
  - Dysgeusia [None]
  - Hypersensitivity [None]
